FAERS Safety Report 7766216-1 (Version None)
Quarter: 2011Q3

REPORT INFORMATION
  Report Type: 
  Country: None (occurrence: None)
  Receive Date: 20110921
  Receipt Date: 20110919
  Transmission Date: 20111222
  Serious: Yes (Hospitalization)
  Sender: FDA-Public Use
  Company Number: DE-BAYER-2011-088037

PATIENT
  Sex: Female

DRUGS (1)
  1. GADAVIST [Suspect]
     Indication: NUCLEAR MAGNETIC RESONANCE IMAGING
     Dosage: 5 ML, ONCE
     Route: 042
     Dates: start: 20110919, end: 20110919

REACTIONS (6)
  - DIZZINESS [None]
  - NAUSEA [None]
  - RETCHING [None]
  - TONGUE DISCOLOURATION [None]
  - TRISMUS [None]
  - OROMANDIBULAR DYSTONIA [None]
